FAERS Safety Report 8097525-7 (Version None)
Quarter: 2012Q1

REPORT INFORMATION
  Report Type: 
  Country: None (occurrence: None)
  Receive Date: 20120131
  Receipt Date: 20120125
  Transmission Date: 20120608
  Serious: No
  Sender: FDA-Public Use
  Company Number: US-PFIZER INC-2012021175

PATIENT
  Sex: Female
  Weight: 29.025 kg

DRUGS (3)
  1. ESGIC [Concomitant]
     Indication: MIGRAINE
     Dosage: UNK
  2. GENOTROPIN [Suspect]
     Dosage: 12 MG, 1X/DAY
     Route: 058
  3. GENOTROPIN [Suspect]
     Indication: BODY HEIGHT BELOW NORMAL
     Dosage: 1.8 MG, 1X/DAY
     Route: 058

REACTIONS (1)
  - HEADACHE [None]
